FAERS Safety Report 7432653-8 (Version None)
Quarter: 2011Q2

REPORT INFORMATION
  Report Type: 
  Country: None (occurrence: None)
  Receive Date: 20110422
  Receipt Date: 20110418
  Transmission Date: 20111010
  Serious: Yes (Death, Hospitalization)
  Sender: FDA-Public Use
  Company Number: BE-ROCHE-720949

PATIENT
  Sex: Female
  Weight: 75 kg

DRUGS (6)
  1. ELOXATIN [Suspect]
     Route: 042
     Dates: start: 20100601
  2. APRANAX [Concomitant]
     Indication: INFLAMMATION
     Route: 048
     Dates: start: 20100608, end: 20100714
  3. MYOLASTAN [Concomitant]
     Route: 048
     Dates: start: 20100608, end: 20100610
  4. BEVACIZUMAB [Suspect]
     Route: 042
     Dates: start: 20100601, end: 20100706
  5. FLURACEDYL [Suspect]
     Route: 042
     Dates: start: 20100601
  6. ELVORINE [Suspect]
     Route: 042
     Dates: start: 20100601

REACTIONS (11)
  - PELVIC ABSCESS [None]
  - MUCOSAL INFLAMMATION [None]
  - DIARRHOEA [None]
  - OROPHARYNGEAL PAIN [None]
  - URINARY TRACT INFECTION BACTERIAL [None]
  - DISEASE PROGRESSION [None]
  - SKIN INFECTION [None]
  - ARTHRALGIA [None]
  - VOMITING [None]
  - NAUSEA [None]
  - PYREXIA [None]
